FAERS Safety Report 20880519 (Version 2)
Quarter: 2022Q2

REPORT INFORMATION
  Report Type: Spontaneous
  Country: US (occurrence: US)
  Receive Date: 20220526
  Receipt Date: 20220530
  Transmission Date: 20220721
  Serious: No
  Sender: FDA-Public Use
  Company Number: US-ELI_LILLY_AND_COMPANY-US202205001836

PATIENT
  Age: 40 Year
  Sex: Female

DRUGS (4)
  1. EMGALITY [Suspect]
     Active Substance: GALCANEZUMAB-GNLM
     Indication: Migraine
     Dosage: 240 MG, OTHER (LOADING DOSE)
     Route: 065
     Dates: start: 20220502
  2. EMGALITY [Suspect]
     Active Substance: GALCANEZUMAB-GNLM
     Indication: Migraine
     Dosage: 240 MG, OTHER (LOADING DOSE)
     Route: 065
     Dates: start: 20220502
  3. UBRELVY [Suspect]
     Active Substance: UBROGEPANT
     Indication: Migraine
     Dosage: UNK, UNKNOWN
     Route: 065
  4. NURTEC ODT [Concomitant]
     Active Substance: RIMEGEPANT SULFATE
     Indication: Migraine
     Dosage: 100 MG, UNKNOWN
     Route: 065

REACTIONS (2)
  - Migraine [Unknown]
  - Product storage error [Unknown]

NARRATIVE: CASE EVENT DATE: 20220521
